FAERS Safety Report 11078925 (Version 1)
Quarter: 2015Q2

REPORT INFORMATION
  Report Type: Spontaneous
  Country: US (occurrence: None)
  Receive Date: 20150428
  Receipt Date: 20150428
  Transmission Date: 20150821
  Serious: Yes (Death, Hospitalization)
  Sender: FDA-Public Use
  Company Number: FK201501952

PATIENT
  Age: 52 Year
  Sex: Female

DRUGS (1)
  1. PACLITAXEL (MANUFACTURER UNKNOWN) (PACLITAXEL) (PACLITAXEL) [Suspect]
     Active Substance: PACLITAXEL
     Indication: BREAST CANCER METASTATIC

REACTIONS (5)
  - Cardiopulmonary failure [None]
  - Haemodialysis [None]
  - Tumour lysis syndrome [None]
  - Encephalopathy [None]
  - Condition aggravated [None]
